FAERS Safety Report 13763782 (Version 1)
Quarter: 2017Q3

REPORT INFORMATION
  Report Type: Spontaneous
  Country: US (occurrence: US)
  Receive Date: 20170718
  Receipt Date: 20170718
  Transmission Date: 20171127
  Serious: Yes (Hospitalization, Other)
  Sender: FDA-Public Use
  Company Number: US-BAUSCH-BL-2017-021200

PATIENT
  Age: 46 Year
  Sex: Female

DRUGS (1)
  1. XIFAXAN [Suspect]
     Active Substance: RIFAXIMIN
     Indication: PRODUCT USED FOR UNKNOWN INDICATION
     Route: 065

REACTIONS (10)
  - Sepsis [Unknown]
  - Sinus tachycardia [Unknown]
  - Urinary incontinence [Unknown]
  - Sjogren^s syndrome [Unknown]
  - Visual impairment [Unknown]
  - Metabolic acidosis [Unknown]
  - Bowel movement irregularity [Unknown]
  - Abdominal pain lower [Unknown]
  - Hypotension [Unknown]
  - Pneumonia [Unknown]

NARRATIVE: CASE EVENT DATE: 201612
